FAERS Safety Report 8316512-4 (Version None)
Quarter: 2012Q2

REPORT INFORMATION
  Report Type: 
  Country: None (occurrence: None)
  Receive Date: 20120427
  Receipt Date: 20120419
  Transmission Date: 20120825
  Serious: Yes (Other)
  Sender: FDA-Public Use
  Company Number: PHHY2010CA76903

PATIENT
  Sex: Male
  Weight: 79.5 kg

DRUGS (9)
  1. EXTAVIA [Suspect]
     Indication: RELAPSING-REMITTING MULTIPLE SCLEROSIS
     Dosage: 8 MIU, QOD
     Route: 058
     Dates: start: 20101104, end: 20110301
  2. EXTAVIA [Suspect]
     Dosage: 8 MIU, QOD
     Route: 058
     Dates: start: 20110501, end: 20120201
  3. ANDROGEL [Concomitant]
  4. REACTINE/CAN/ [Concomitant]
     Indication: DERMATITIS
  5. CRESTOR [Concomitant]
  6. MULTI-VITAMINS [Concomitant]
  7. VITAMIN B-12 [Concomitant]
  8. POTASSIUM CHLORIDE [Concomitant]
  9. MACA [Concomitant]

REACTIONS (6)
  - PRURITUS [None]
  - DEPRESSION [None]
  - RASH PRURITIC [None]
  - OTORRHOEA [None]
  - CHILLS [None]
  - DRUG INEFFECTIVE [None]
